FAERS Safety Report 12730688 (Version 2)
Quarter: 2016Q3

REPORT INFORMATION
  Report Type: Spontaneous
  Country: US (occurrence: US)
  Receive Date: 20160910
  Receipt Date: 20160930
  Transmission Date: 20161109
  Serious: Yes (Other)
  Sender: FDA-Public Use
  Company Number: PHHY2016US124723

PATIENT
  Age: 67 Year
  Sex: Female

DRUGS (1)
  1. CAMBIA [Suspect]
     Active Substance: DICLOFENAC POTASSIUM
     Indication: MIGRAINE
     Dosage: 50 MG, ONCE/SINGLE
     Route: 048

REACTIONS (5)
  - Haematochezia [Recovered/Resolved]
  - Oesophageal disorder [Recovered/Resolved]
  - Abdominal discomfort [Recovered/Resolved]
  - Oesophageal haemorrhage [Unknown]
  - Gastrooesophageal reflux disease [Unknown]

NARRATIVE: CASE EVENT DATE: 2016
